FAERS Safety Report 6430484-9 (Version None)
Quarter: 2009Q4

REPORT INFORMATION
  Report Type: 
  Country: None (occurrence: None)
  Receive Date: 20091106
  Receipt Date: 20091030
  Transmission Date: 20100525
  Serious: Yes (Hospitalization)
  Sender: FDA-Public Use
  Company Number: US-RB-023961-09

PATIENT
  Age: 28 Month
  Sex: Male
  Weight: 18 kg

DRUGS (1)
  1. SUBOXONE [Suspect]
     Dosage: CHILD PUT 8 MG TABLET IN MOUTH, REMOVED INTACT BUT MOIST
     Route: 048

REACTIONS (4)
  - ACCIDENTAL EXPOSURE [None]
  - BRADYPNOEA [None]
  - DRUG TOXICITY [None]
  - LETHARGY [None]
